FAERS Safety Report 15038644 (Version 2)
Quarter: 2018Q2

REPORT INFORMATION
  Report Type: Spontaneous
  Country: US (occurrence: US)
  Receive Date: 20180620
  Receipt Date: 20180620
  Transmission Date: 20180711
  Serious: Yes (Other)
  Sender: FDA-Public Use
  Company Number: US-GE HEALTHCARE LIFE SCIENCES-OSCN-PR-1004S-0088

PATIENT
  Sex: Female

DRUGS (19)
  1. CELEXA [Concomitant]
     Active Substance: CITALOPRAM HYDROBROMIDE
  2. MAGNEVIST [Suspect]
     Active Substance: GADOPENTETATE DIMEGLUMINE
     Indication: PRODUCT USED FOR UNKNOWN INDICATION
     Dosage: , SINGLE
     Route: 065
     Dates: start: 20020520, end: 20020520
  3. MS CONTIN [Concomitant]
     Active Substance: MORPHINE SULFATE
  4. SINGULAIR [Concomitant]
     Active Substance: MONTELUKAST SODIUM
  5. TIGAN [Concomitant]
     Active Substance: TRIMETHOBENZAMIDE HYDROCHLORIDE
  6. PROHANCE [Suspect]
     Active Substance: GADOTERIDOL
     Indication: PRODUCT USED FOR UNKNOWN INDICATION
     Dosage: 15 ML, SINGLE
     Route: 042
     Dates: start: 20030114, end: 20030114
  7. OXYCONTIN [Concomitant]
     Active Substance: OXYCODONE HYDROCHLORIDE
  8. HYCODAN                            /00060002/ [Concomitant]
     Active Substance: HYDROCODONE BITARTRATE
  9. GADOLINIUM (UNSPECIFIED) [Suspect]
     Active Substance: GADOLINIUM
     Indication: PRODUCT USED FOR UNKNOWN INDICATION
     Dosage: , SINGLE
     Route: 065
     Dates: start: 20010420, end: 20010420
  10. GADOLINIUM (UNSPECIFIED) [Suspect]
     Active Substance: GADOLINIUM
     Dosage: , SINGLE
     Route: 042
     Dates: start: 20020325, end: 20020325
  11. GADOLINIUM (UNSPECIFIED) [Suspect]
     Active Substance: GADOLINIUM
     Dosage: UNK, SINGLE
     Route: 065
     Dates: start: 200205, end: 200205
  12. PYRIDIUM [Concomitant]
     Active Substance: PHENAZOPYRIDINE
  13. PROHANCE [Suspect]
     Active Substance: GADOTERIDOL
     Dosage: , SINGLE
     Route: 065
     Dates: start: 20061020, end: 20061020
  14. EFFEXOR [Concomitant]
     Active Substance: VENLAFAXINE HYDROCHLORIDE
  15. ORAPRED [Concomitant]
     Active Substance: PREDNISOLONE SODIUM PHOSPHATE
  16. GADOLINIUM (UNSPECIFIED) [Suspect]
     Active Substance: GADOLINIUM
     Dosage: , SINGLE
     Route: 065
     Dates: start: 20060524, end: 20060524
  17. MAGNEVIST [Suspect]
     Active Substance: GADOPENTETATE DIMEGLUMINE
     Dosage: , SINGLE
     Route: 065
     Dates: start: 20040709, end: 20040709
  18. ANTIVERT                           /00072802/ [Concomitant]
  19. AMBIEN [Concomitant]
     Active Substance: ZOLPIDEM TARTRATE

REACTIONS (1)
  - Nephrogenic systemic fibrosis [Not Recovered/Not Resolved]

NARRATIVE: CASE EVENT DATE: 2007
